FAERS Safety Report 5829433-3 (Version None)
Quarter: 2008Q3

REPORT INFORMATION
  Report Type: 
  Country: None (occurrence: None)
  Receive Date: 20080729
  Receipt Date: 20080715
  Transmission Date: 20090109
  Serious: Yes (Hospitalization)
  Sender: FDA-Public Use
  Company Number: 2008001690

PATIENT
  Sex: Male
  Weight: 73 kg

DRUGS (7)
  1. ERLOTINIB    (ERLOTINIB) [Suspect]
     Indication: HEAD AND NECK CANCER
     Dosage: (150 MG, QD), ORAL
     Route: 048
     Dates: start: 20080414, end: 20080628
  2. BEVACIZUMAB (INJECTION FOR INFUSION) [Suspect]
     Dosage: (15 MG/KG), INTRAVENOUS
     Route: 042
     Dates: start: 20080414, end: 20080609
  3. PACLITAXEL [Suspect]
     Dosage: (200 MG/M2, DAYS 1 AND 22), INTRAVENOUS
     Route: 042
     Dates: start: 20080414, end: 20080505
  4. CARBOPLATIN [Suspect]
     Dosage: (6 ,DAYS 1 AND 22), INTRAVENOUS
     Route: 042
     Dates: start: 20080414, end: 20080505
  5. 5 FLOUROURACIL (FLUOROURACIL) (INJECTION FOR INFUSION) [Suspect]
     Dosage: (200 MG/M2), INTRAVENOUS
     Route: 042
     Dates: start: 20080414, end: 20080523
  6. PACLITAXEL [Suspect]
     Dosage: (50 MG/M2), INTRAVENOUS
     Route: 042
     Dates: end: 20080623
  7. RADIATION THERAPY [Suspect]

REACTIONS (4)
  - GASTROINTESTINAL FISTULA [None]
  - HAEMATOCRIT DECREASED [None]
  - HAEMOGLOBIN DECREASED [None]
  - POST PROCEDURAL HAEMORRHAGE [None]
